FAERS Safety Report 9349564 (Version 2)
Quarter: 2013Q2

REPORT INFORMATION
  Report Type: Spontaneous
  Country: JP (occurrence: JP)
  Receive Date: 20130614
  Receipt Date: 20130625
  Transmission Date: 20140414
  Serious: Yes (Other)
  Sender: FDA-Public Use
  Company Number: JP-GLAXOSMITHKLINE-B0898894A

PATIENT
  Age: 70 Year
  Sex: Male

DRUGS (3)
  1. SUMATRIPTAN SUCCINATE [Suspect]
     Indication: CLUSTER HEADACHE
     Route: 048
     Dates: end: 201306
  2. SODIUM VALPROATE [Concomitant]
     Indication: CLUSTER HEADACHE
     Route: 065
  3. AMITRIPTYLINE HYDROCHLORIDE [Concomitant]
     Indication: CLUSTER HEADACHE
     Route: 065

REACTIONS (1)
  - Cerebral infarction [Unknown]
